FAERS Safety Report 9850855 (Version 1)
Quarter: 2014Q1

REPORT INFORMATION
  Report Type: Spontaneous
  Country: US (occurrence: US)
  Receive Date: 20140128
  Receipt Date: 20140128
  Transmission Date: 20141002
  Serious: No
  Sender: FDA-Public Use
  Company Number: US-009507513-1401USA012374

PATIENT
  Sex: Female

DRUGS (2)
  1. FOSAMAX [Suspect]
     Indication: BONE DISORDER
     Dosage: 1 DF, QW
     Route: 048
  2. ALENDRONATE SODIUM [Suspect]
     Dosage: UNK

REACTIONS (1)
  - Pigmentation disorder [Not Recovered/Not Resolved]
